FAERS Safety Report 7604765-7 (Version None)
Quarter: 2011Q3

REPORT INFORMATION
  Report Type: 
  Country: None (occurrence: None)
  Receive Date: 20110712
  Receipt Date: 20110701
  Transmission Date: 20111222
  Serious: Yes (Other)
  Sender: FDA-Public Use
  Company Number: PHHY2011DE41173

PATIENT
  Age: 77 Year
  Sex: Female
  Weight: 53 kg

DRUGS (4)
  1. NOVALGIN [Concomitant]
     Indication: PAIN
     Dosage: 1000 MG, UNK
     Route: 048
     Dates: start: 20110127
  2. ZOMETA [Suspect]
     Indication: METASTASES TO BONE
     Dosage: 4 MG/5 ML, EVERY 4 WEEKS
     Route: 042
     Dates: start: 20110510, end: 20110510
  3. MORPHINE SULFATE [Concomitant]
     Indication: PAIN
     Dosage: 20 MG, UNK
     Route: 048
     Dates: start: 20110127
  4. LYRICA [Concomitant]
     Indication: PAIN
     Dosage: 125 MG, DAILY
     Route: 048
     Dates: start: 20110127

REACTIONS (3)
  - CIRCULATORY COLLAPSE [None]
  - ACUTE PHASE REACTION [None]
  - PYREXIA [None]
